FAERS Safety Report 5679489-6 (Version None)
Quarter: 2008Q1

REPORT INFORMATION
  Report Type: 
  Country: None (occurrence: None)
  Receive Date: 20080325
  Receipt Date: 20080313
  Transmission Date: 20080703
  Serious: Yes (Hospitalization)
  Sender: FDA-Public Use
  Company Number: US-PFIZER INC-2008023253

PATIENT
  Sex: Female
  Weight: 89.8 kg

DRUGS (4)
  1. SU-011,248 [Suspect]
     Indication: BREAST CANCER
     Route: 048
     Dates: start: 20080211, end: 20080310
  2. ATARAX [Concomitant]
     Route: 048
  3. HYDROCODONE BITARTRATE [Concomitant]
     Route: 048
     Dates: start: 20080311
  4. ALUMINIUM HYDROXIDE/DIPHENHYDRAMINE/MAGNESIUM HYDROXIDE/LIDOCAINE [Concomitant]
     Route: 048
     Dates: start: 20080311

REACTIONS (4)
  - DEHYDRATION [None]
  - INFECTION [None]
  - NAUSEA [None]
  - VOMITING [None]
